FAERS Safety Report 9275125 (Version 1)
Quarter: 2013Q2

REPORT INFORMATION
  Report Type: Spontaneous
  Country: FR (occurrence: FR)
  Receive Date: 20130507
  Receipt Date: 20130507
  Transmission Date: 20140414
  Serious: Yes (Hospitalization)
  Sender: FDA-Public Use
  Company Number: FR-PFIZER INC-2013138372

PATIENT
  Sex: Female

DRUGS (1)
  1. ADVIL ENFANTS ET NOURRISSONS [Suspect]

REACTIONS (1)
  - Brain abscess [Recovered/Resolved]
